FAERS Safety Report 11117806 (Version 1)
Quarter: 2015Q2

REPORT INFORMATION
  Report Type: Spontaneous
  Country: US (occurrence: US)
  Receive Date: 20150518
  Receipt Date: 20150518
  Transmission Date: 20150821
  Serious: No
  Sender: FDA-Public Use
  Company Number: US-HORIZON-RAV-0002-2015

PATIENT
  Age: 5 Month
  Sex: Male

DRUGS (2)
  1. CARBAGLU [Concomitant]
     Active Substance: CARGLUMIC ACID
  2. RAVICTI [Suspect]
     Active Substance: GLYCEROL PHENYLBUTYRATE
     Indication: UREA CYCLE ENZYME DEFICIENCY
     Dates: start: 20150325

REACTIONS (2)
  - Drug administered to patient of inappropriate age [Unknown]
  - Vomiting [Recovered/Resolved]
